FAERS Safety Report 10206317 (Version 2)
Quarter: 2014Q2

REPORT INFORMATION
  Report Type: Spontaneous
  Country: AT (occurrence: AT)
  Receive Date: 20140530
  Receipt Date: 20140613
  Transmission Date: 20141212
  Serious: Yes (Hospitalization)
  Sender: FDA-Public Use
  Company Number: PHHY2014AT062635

PATIENT
  Age: 78 Year
  Sex: Male

DRUGS (6)
  1. EXFORGE HCT [Suspect]
     Indication: HYPERTENSION
     Dosage: 1 DF (VALS 160 MG / AMLO 10 MG / HYDR 25 MG), DAILY
     Dates: end: 201405
  2. ATORVASTATIN [Concomitant]
     Dosage: UNK UKN, UNK
  3. COLIBIOGEN [Concomitant]
     Dosage: UNK UKN, UNK
  4. TRITTICO [Concomitant]
     Indication: HYPERTENSION
     Dosage: 150 MG, DAILY
  5. CLOPIDOGREL [Concomitant]
     Dosage: 1 DAILY
  6. CARVEDILOL [Concomitant]
     Dosage: 1 DF DAILY

REACTIONS (8)
  - Speech disorder [Recovered/Resolved]
  - Circulatory collapse [Recovered/Resolved]
  - Paraesthesia [Recovered/Resolved]
  - Angioedema [Recovered/Resolved]
  - Swollen tongue [Recovered/Resolved]
  - Lip swelling [Recovered/Resolved]
  - Dizziness [Recovered/Resolved]
  - Nausea [Recovered/Resolved]
